FAERS Safety Report 20614143 (Version 2)
Quarter: 2022Q1

REPORT INFORMATION
  Report Type: Spontaneous
  Country: US (occurrence: US)
  Receive Date: 20220320
  Receipt Date: 20220320
  Transmission Date: 20220424
  Serious: Yes (Death, Hospitalization, Other)
  Sender: FDA-Public Use
  Company Number: US-APOTEX-2022AP004495

PATIENT
  Age: 74 Year
  Sex: Female

DRUGS (4)
  1. CYCLOSPORINE [Suspect]
     Active Substance: CYCLOSPORINE
     Indication: Toxic epidermal necrolysis
     Dosage: 81 MILLIGRAM, Q.12H (3 MILLIGRAMS/KILOGRAM PER DAY)
     Route: 065
  2. PREDNISONE [Concomitant]
     Active Substance: PREDNISONE
     Indication: Urinary tract infection
     Dosage: UNK
     Route: 048
  3. PREDNISONE [Concomitant]
     Active Substance: PREDNISONE
     Indication: Rash
  4. PREDNISONE [Concomitant]
     Active Substance: PREDNISONE
     Indication: Lip swelling

REACTIONS (1)
  - Bacteraemia [Fatal]
